FAERS Safety Report 9516769 (Version 1)
Quarter: 2013Q1

REPORT INFORMATION
  Report Type: Spontaneous
  Country: US (occurrence: None)
  Receive Date: 20130305
  Receipt Date: 20130305
  Transmission Date: 20140127
  Serious: Yes (Life-Threatening, Other)
  Sender: FDA-Public Use
  Company Number: 163-21880-12081372

PATIENT
  Age: 58 Year
  Sex: Male
  Weight: 101.15 kg

DRUGS (6)
  1. REVLIMID [Suspect]
     Indication: PLASMA CELL MYELOMA
     Route: 048
     Dates: start: 20120227
  2. PRILOSEC [Concomitant]
  3. ZOFRAN (ONDANSETRON HYDROCHLORIDE) [Concomitant]
  4. DEXAMETHASONE (DEXAMETHASONE) [Concomitant]
  5. CALCIUM (CALCIUM) [Concomitant]
  6. CITALOPRAM (CITALOPRAM) [Concomitant]

REACTIONS (1)
  - Thrombocytopenia [None]
